FAERS Safety Report 19648825 (Version 2)
Quarter: 2021Q3

REPORT INFORMATION
  Report Type: Report from Study
  Country: MX (occurrence: MX)
  Receive Date: 20210802
  Receipt Date: 20210824
  Transmission Date: 20211014
  Serious: Yes (Other)
  Sender: FDA-Public Use
  Company Number: MX-ASTRAZENECA-2021A650364

PATIENT
  Age: 19448 Day
  Sex: Male
  Weight: 63 kg

DRUGS (11)
  1. VITAMIN B COMPLEX [Concomitant]
     Active Substance: CYANOCOBALAMIN\DEXPANTHENOL\NIACINAMIDE\PYRIDOXINE HYDROCHLORIDE\RIBOFLAVIN 5^-PHOSPHATE SODIUM\THIAMINE HYDROCHLORIDE\VITAMIN B COMPLEX
     Route: 065
  2. XIGDUO XR [Suspect]
     Active Substance: DAPAGLIFLOZIN PROPANEDIOL\METFORMIN HYDROCHLORIDE
     Indication: DIABETES MELLITUS
     Dosage: 5/1000MG
     Route: 048
     Dates: start: 202010
  3. AMABLY [Concomitant]
     Indication: GASTRIC ULCER
     Route: 048
     Dates: start: 20200412
  4. CLONAZEPAM. [Concomitant]
     Active Substance: CLONAZEPAM
     Indication: ANXIETY
     Route: 048
  5. LOSARTAN. [Concomitant]
     Active Substance: LOSARTAN
     Indication: HYPERTENSION
     Route: 048
  6. LEXOTAN [Concomitant]
     Active Substance: BROMAZEPAM
     Indication: ANXIETY
     Route: 048
  7. DOLONEUROBION FORTE [Concomitant]
     Dosage: 8.0DF UNKNOWN
     Route: 065
  8. INSULIN [Concomitant]
     Active Substance: INSULIN NOS
     Dosage: SUSPENDED IN MID?APRIL
     Route: 065
  9. CONCORD [Concomitant]
     Indication: HYPERTENSION
     Route: 048
     Dates: start: 202010
  10. VOTRIPAX [Concomitant]
     Dosage: REFERS ITS USE DURING THE MONTH OF JANUARY
     Route: 065
  11. GELAN PLUS [Concomitant]
     Dosage: SUSPENDED IN MID?APRIL
     Route: 065

REACTIONS (15)
  - Vomiting [Recovering/Resolving]
  - Abdominal distension [Recovering/Resolving]
  - Tinnitus [Unknown]
  - Renal failure [Recovering/Resolving]
  - Nausea [Unknown]
  - Renal cyst [Recovering/Resolving]
  - Product use issue [Unknown]
  - Diarrhoea [Recovering/Resolving]
  - Nephrolithiasis [Recovering/Resolving]
  - Product dose omission issue [Unknown]
  - Abdominal infection [Unknown]
  - Dizziness [Recovering/Resolving]
  - Pain in extremity [Recovering/Resolving]
  - Asthenia [Recovered/Resolved]
  - Vascular insufficiency [Recovering/Resolving]

NARRATIVE: CASE EVENT DATE: 20210412
